FAERS Safety Report 4608395-0 (Version None)
Quarter: 2005Q1

REPORT INFORMATION
  Report Type: 
  Country: None (occurrence: None)
  Receive Date: 20050315
  Receipt Date: 20050303
  Transmission Date: 20050727
  Serious: Yes (Hospitalization)
  Sender: FDA-Public Use
  Company Number: JP-JNJFOC-20041004722

PATIENT
  Sex: Male
  Weight: 54 kg

DRUGS (10)
  1. REMICADE [Suspect]
     Route: 042
  2. REMICADE [Suspect]
     Route: 042
  3. REMICADE [Suspect]
     Route: 042
  4. REMICADE [Suspect]
     Route: 042
  5. REMICADE [Suspect]
     Indication: FISTULA
     Route: 042
  6. REMICADE [Suspect]
     Indication: CROHN'S DISEASE
     Route: 042
  7. PENTASA [Suspect]
     Indication: DRUG USE FOR UNKNOWN INDICATION
  8. LAC B [Concomitant]
     Indication: CROHN'S DISEASE
  9. KENALOG [Concomitant]
     Route: 061
  10. MEDIEF [Concomitant]

REACTIONS (9)
  - ANAPHYLACTOID REACTION [None]
  - EXANTHEM [None]
  - GENERALISED OEDEMA [None]
  - INFUSION RELATED REACTION [None]
  - MOUTH ULCERATION [None]
  - OROPHARYNGEAL SWELLING [None]
  - SHOCK [None]
  - URTICARIA GENERALISED [None]
  - VOMITING [None]
